FAERS Safety Report 19849649 (Version 1)
Quarter: 2021Q3

REPORT INFORMATION
  Report Type: Spontaneous
  Country: US (occurrence: US)
  Receive Date: 20210917
  Receipt Date: 20210917
  Transmission Date: 20211014
  Serious: Yes (Hospitalization, Other)
  Sender: FDA-Public Use
  Company Number: US-TAKEDA-US201842378

PATIENT
  Age: 39 Year
  Sex: Female

DRUGS (5)
  1. NATPARA (PARATHYROID HORMONE) [Suspect]
     Active Substance: PARATHYROID HORMONE
     Indication: POST PROCEDURAL HYPOPARATHYROIDISM
     Dosage: 75 ?G, UNK
     Route: 065
  2. NATPARA (PARATHYROID HORMONE) [Suspect]
     Active Substance: PARATHYROID HORMONE
     Indication: POST PROCEDURAL HYPOPARATHYROIDISM
     Dosage: 75 ?G, UNK
     Route: 065
  3. CALCIUM CARBONATE. [Concomitant]
     Active Substance: CALCIUM CARBONATE
     Indication: POST PROCEDURAL HYPOPARATHYROIDISM
     Dosage: 2?3 TIMES PER DAY
     Route: 065
  4. NATPARA (PARATHYROID HORMONE) [Suspect]
     Active Substance: PARATHYROID HORMONE
     Indication: POST PROCEDURAL HYPOPARATHYROIDISM
     Dosage: 75 ?G, UNK
     Route: 065
  5. CALCITRIOL. [Concomitant]
     Active Substance: CALCITRIOL
     Indication: POST PROCEDURAL HYPOPARATHYROIDISM
     Dosage: 2?3 TIMES PER DAY
     Route: 065

REACTIONS (6)
  - Paraesthesia [Unknown]
  - Blood calcium decreased [Unknown]
  - Paraesthesia oral [Unknown]
  - Hypocalcaemic seizure [Unknown]
  - Muscle spasms [Unknown]
  - Inappropriate schedule of product administration [Unknown]

NARRATIVE: CASE EVENT DATE: 20181022
